FAERS Safety Report 5226930-9 (Version None)
Quarter: 2007Q1

REPORT INFORMATION
  Report Type: 
  Country: None (occurrence: None)
  Receive Date: 20070201
  Receipt Date: 20070201
  Transmission Date: 20070707
  Serious: Yes (Life-Threatening)
  Sender: FDA-Public Use
  Company Number: None

PATIENT
  Sex: Female

DRUGS (1)
  1. OXYCODONE HYDROCHLORIDE [Suspect]
     Dosage: 40 MG LTID PO
     Route: 048
     Dates: start: 20070124, end: 20070125

REACTIONS (2)
  - STOMACH DISCOMFORT [None]
  - THROAT TIGHTNESS [None]
